FAERS Safety Report 7553488-1 (Version None)
Quarter: 2011Q2

REPORT INFORMATION
  Report Type: 
  Country: None (occurrence: None)
  Receive Date: 20110617
  Receipt Date: 20110103
  Transmission Date: 20111010
  Serious: Yes (Hospitalization)
  Sender: FDA-Public Use
  Company Number: US-BAYER-201028798NA

PATIENT
  Age: 21 Year
  Sex: Female
  Weight: 69.545 kg

DRUGS (13)
  1. YASMIN [Suspect]
     Indication: PRODUCT USED FOR UNKNOWN INDICATION
     Route: 048
     Dates: start: 20040901, end: 20080601
  2. MOTRIN [Concomitant]
  3. ZOFRAN [Concomitant]
     Dates: start: 20100315, end: 20100315
  4. DROSPIRENONE AND ETHINYL ESTRADIOL [Suspect]
     Indication: PRODUCT USED FOR UNKNOWN INDICATION
     Route: 048
     Dates: start: 20080701, end: 20100501
  5. ANTIBIOTICS [Concomitant]
     Indication: URINARY TRACT INFECTION
  6. ORLISTAT [Concomitant]
     Dates: end: 20100101
  7. YAZ [Suspect]
     Indication: PRODUCT USED FOR UNKNOWN INDICATION
     Route: 048
     Dates: start: 20100301
  8. NEXIUM [Concomitant]
     Indication: GASTRITIS
  9. ANCEF [Concomitant]
     Dates: start: 20100315, end: 20100315
  10. IBUPROFEN (ADVIL) [Concomitant]
  11. PHENERGAN HCL [Concomitant]
     Dates: start: 20100315, end: 20100315
  12. AZITHROMYCIN [Concomitant]
     Indication: INFECTION
     Dosage: 1 G, UNK
     Route: 048
     Dates: start: 20090627, end: 20090706
  13. PERCOCET [Concomitant]
     Dates: start: 20100315

REACTIONS (6)
  - CHOLECYSTITIS CHRONIC [None]
  - VOMITING [None]
  - CHOLELITHIASIS [None]
  - INJURY [None]
  - ABDOMINAL PAIN UPPER [None]
  - ABDOMINAL PAIN [None]
